FAERS Safety Report 18322896 (Version 2)
Quarter: 2021Q3

REPORT INFORMATION
  Report Type: Spontaneous
  Country: CA (occurrence: CA)
  Receive Date: 20200929
  Receipt Date: 20210713
  Transmission Date: 20211014
  Serious: Yes (Death, Hospitalization, Other)
  Sender: FDA-Public Use
  Company Number: CA-ACCORD-199505

PATIENT
  Age: 70 Year
  Sex: Female

DRUGS (2)
  1. DOCETAXEL. [Suspect]
     Active Substance: DOCETAXEL
     Indication: CHEMOTHERAPY
  2. GRASTOFIL [Suspect]
     Active Substance: FILGRASTIM
     Indication: BREAST CANCER
     Dosage: STRENGTH 300 MCG/0.5 ML
     Route: 065
     Dates: start: 20200505, end: 202007

REACTIONS (2)
  - Interstitial lung disease [Fatal]
  - Pneumonitis [Fatal]

NARRATIVE: CASE EVENT DATE: 20200808
